FAERS Safety Report 5668687-3 (Version None)
Quarter: 2008Q1

REPORT INFORMATION
  Report Type: 
  Country: None (occurrence: None)
  Receive Date: 20080312
  Receipt Date: 20080303
  Transmission Date: 20080703
  Serious: Yes (Other)
  Sender: FDA-Public Use
  Company Number: 066-21880-08030101

PATIENT
  Age: 78 Year
  Sex: Female
  Weight: 75 kg

DRUGS (1)
  1. REVLIMID [Suspect]
     Indication: MULTIPLE MYELOMA
     Dosage: 25, DAILY; ORAL
     Route: 048
     Dates: start: 20080212, end: 20080303

REACTIONS (4)
  - ANOREXIA [None]
  - BACK PAIN [None]
  - FACE OEDEMA [None]
  - PITTING OEDEMA [None]
